FAERS Safety Report 5021303-6 (Version None)
Quarter: 2006Q2

REPORT INFORMATION
  Report Type: 
  Country: None (occurrence: None)
  Receive Date: 20060608
  Receipt Date: 20060602
  Transmission Date: 20061013
  Serious: Yes (Hospitalization)
  Sender: FDA-Public Use
  Company Number: FR-GLAXOSMITHKLINE-B0426490A

PATIENT
  Age: 66 Year
  Sex: Female
  Weight: 64 kg

DRUGS (2)
  1. ZANTAC [Suspect]
     Dosage: 50MG SINGLE DOSE
     Route: 042
     Dates: start: 20060428, end: 20060428
  2. POLARAMINE [Suspect]
     Dosage: 5MG SINGLE DOSE
     Route: 042
     Dates: start: 20060428, end: 20060428

REACTIONS (4)
  - CONFUSIONAL STATE [None]
  - DRY MOUTH [None]
  - MUSCLE CONTRACTIONS INVOLUNTARY [None]
  - SOMNOLENCE [None]
